FAERS Safety Report 4501351-2 (Version None)
Quarter: 2004Q4

REPORT INFORMATION
  Report Type: 
  Country: None (occurrence: None)
  Receive Date: 20041109
  Receipt Date: 20041020
  Transmission Date: 20050328
  Serious: Yes (Hospitalization)
  Sender: FDA-Public Use
  Company Number: US_0410107100

PATIENT
  Age: 50 Year
  Sex: Female
  Weight: 76 kg

DRUGS (3)
  1. HUMATROPE [Suspect]
     Indication: GROWTH HORMONE DEFICIENCY
     Dosage: 0.4 MG/ 1 DAY
     Dates: start: 20020819, end: 20040919
  2. SYNTHROID [Concomitant]
  3. ESTRADERM [Concomitant]

REACTIONS (2)
  - PITUITARY TUMOUR BENIGN [None]
  - VISUAL PATHWAY DISORDER [None]
